FAERS Safety Report 4993636-0 (Version None)
Quarter: 2006Q2

REPORT INFORMATION
  Report Type: 
  Country: None (occurrence: None)
  Receive Date: 20060505
  Receipt Date: 20051230
  Transmission Date: 20061013
  Serious: Yes (Hospitalization)
  Sender: FDA-Public Use
  Company Number: US-MERCK-0601USA00138

PATIENT
  Age: 62 Year
  Sex: Female
  Weight: 57 kg

DRUGS (10)
  1. VIOXX [Suspect]
     Indication: ARTHRITIS
     Route: 048
     Dates: start: 20030919
  2. VIOXX [Suspect]
     Route: 048
  3. VIOXX [Suspect]
     Indication: ARTHRALGIA
     Route: 048
     Dates: start: 20030919
  4. VIOXX [Suspect]
     Route: 048
  5. ASPIRIN [Concomitant]
     Route: 048
  6. ZOLOFT [Concomitant]
     Route: 065
  7. ZESTORETIC [Concomitant]
     Route: 065
  8. DARVOCET [Concomitant]
     Route: 048
  9. LIPITOR [Concomitant]
     Route: 065
  10. BEXTRA [Concomitant]
     Route: 065
     Dates: end: 20030901

REACTIONS (5)
  - ATELECTASIS [None]
  - HAEMOGLOBIN DECREASED [None]
  - PLEURAL EFFUSION [None]
  - PNEUMONIA [None]
  - PULMONARY EMBOLISM [None]
